FAERS Safety Report 5649222-2 (Version None)
Quarter: 2008Q1

REPORT INFORMATION
  Report Type: 
  Country: None (occurrence: None)
  Receive Date: 20080304
  Receipt Date: 20071130
  Transmission Date: 20080703
  Serious: No
  Sender: FDA-Public Use
  Company Number: US-BAYER-200716088NA

PATIENT
  Age: 44 Year
  Sex: Female
  Weight: 59 kg

DRUGS (6)
  1. MAGNEVIST [Suspect]
     Indication: NUCLEAR MAGNETIC RESONANCE IMAGING
     Dosage: TOTAL DAILY DOSE: 12 ML  UNIT DOSE: 12 ML
     Route: 042
     Dates: start: 20071130, end: 20071130
  2. IBUPROFEN [Concomitant]
  3. METHOCARBAMOL [Concomitant]
  4. FLUCINOLONE [Concomitant]
  5. FLUTICASONE PROPIONATE [Concomitant]
  6. FLUOXETINE [Concomitant]

REACTIONS (2)
  - PRURITUS [None]
  - URTICARIA [None]
